FAERS Safety Report 5148572-6 (Version None)
Quarter: 2006Q4

REPORT INFORMATION
  Report Type: 
  Country: None (occurrence: None)
  Receive Date: 20061107
  Receipt Date: 20061023
  Transmission Date: 20070319
  Serious: Yes (Death)
  Sender: FDA-Public Use
  Company Number: 2006SI009946

PATIENT
  Age: 79 Year
  Sex: Female

DRUGS (1)
  1. CLOZAPINE [Suspect]
     Dosage: 50 MG;QD;PO
     Route: 048
     Dates: end: 20060101

REACTIONS (1)
  - DEATH [None]
